FAERS Safety Report 8575171-6 (Version None)
Quarter: 2012Q3

REPORT INFORMATION
  Report Type: 
  Country: None (occurrence: None)
  Receive Date: 20120807
  Receipt Date: 20120717
  Transmission Date: 20120928
  Serious: Yes (Death, Other)
  Sender: FDA-Public Use
  Company Number: FR-009507513-1207FRA009979

PATIENT

DRUGS (3)
  1. TIENAM 500MG/500MG, POUDRE POUR PERFUSION [Suspect]
     Indication: PERITONITIS
     Route: 033
  2. METRONIDAZOLE [Suspect]
     Route: 042
  3. TIENAM 500MG/500MG, POUDRE POUR PERFUSION [Suspect]
     Dosage: UNK
     Route: 042

REACTIONS (1)
  - SEPTIC SHOCK [None]
